FAERS Safety Report 15979947 (Version 1)
Quarter: 2019Q1

REPORT INFORMATION
  Report Type: Spontaneous
  Country: US (occurrence: US)
  Receive Date: 20190218
  Receipt Date: 20190218
  Transmission Date: 20190418
  Serious: Yes (Hospitalization)
  Sender: FDA-Public Use
  Company Number: None

PATIENT
  Sex: Female

DRUGS (20)
  1. PANTOPRAZOLE [Concomitant]
     Active Substance: PANTOPRAZOLE
  2. METHLPRED [Concomitant]
  3. MESALAMINE. [Concomitant]
     Active Substance: MESALAMINE
  4. FAMOTIDINE. [Concomitant]
     Active Substance: FAMOTIDINE
  5. ENBREL [Suspect]
     Active Substance: ETANERCEPT
     Indication: PSORIATIC ARTHROPATHY
     Dosage: ?          OTHER FREQUENCY:QW;?
     Route: 058
     Dates: start: 20180216
  6. METHOCARBAM [Concomitant]
     Active Substance: METHOCARBAMOL
  7. METAVALONE [Concomitant]
  8. FLUTICASONE. [Concomitant]
     Active Substance: FLUTICASONE
  9. OXYCOD APAP [Concomitant]
  10. METROMIDAZOL [Concomitant]
  11. TORSEMIDE. [Concomitant]
     Active Substance: TORSEMIDE
  12. FOLIVANE F [Concomitant]
  13. PROCHLORPER [Concomitant]
  14. LEVOFLOXACIN. [Concomitant]
     Active Substance: LEVOFLOXACIN
  15. GABAPENTIN. [Concomitant]
     Active Substance: GABAPENTIN
  16. QUETIAPINE. [Concomitant]
     Active Substance: QUETIAPINE
  17. PROMETHAZINE [Concomitant]
     Active Substance: PROMETHAZINE\PROMETHAZINE HYDROCHLORIDE
  18. HYDROXYCHLOR [Concomitant]
     Active Substance: HYDROXYCHLOROQUINE
  19. NATURE THROI [Concomitant]
  20. CHLORZOXAZON [Concomitant]

REACTIONS (2)
  - Appendicitis [None]
  - Kidney infection [None]
